FAERS Safety Report 9154295 (Version 1)
Quarter: 2013Q1

REPORT INFORMATION
  Report Type: Spontaneous
  Country: US (occurrence: US)
  Receive Date: 20130311
  Receipt Date: 20130311
  Transmission Date: 20140127
  Serious: Yes (Hospitalization, Other)
  Sender: FDA-Public Use
  Company Number: US-EISAI INC-E3810-06282-SPO-US

PATIENT
  Age: 18 None
  Sex: Female
  Weight: 53 kg

DRUGS (6)
  1. ACIPHEX (RABEPRAZOLE) [Suspect]
     Route: 048
     Dates: start: 201107
  2. MOTILIUM [Suspect]
     Indication: IMPAIRED GASTRIC EMPTYING
     Route: 048
     Dates: start: 20130208
  3. MOTILIUM [Suspect]
     Dosage: UNKNOWN
     Route: 048
     Dates: start: 201105, end: 20130208
  4. GABEPENTIN [Concomitant]
     Indication: PAIN
     Route: 048
     Dates: start: 2009
  5. AMITRIPTYLINE [Concomitant]
     Indication: NAUSEA
     Route: 048
     Dates: start: 2009
  6. MELATONIN [Concomitant]
     Indication: SLEEP DISORDER
     Route: 048

REACTIONS (5)
  - Superior mesenteric artery syndrome [Unknown]
  - Abnormal loss of weight [Recovering/Resolving]
  - Migraine [Recovered/Resolved]
  - Failure to thrive [Unknown]
  - Nausea [Unknown]
